FAERS Safety Report 4407920-2 (Version None)
Quarter: 2004Q3

REPORT INFORMATION
  Report Type: 
  Country: None (occurrence: None)
  Receive Date: 20040721
  Receipt Date: 20040707
  Transmission Date: 20050211
  Serious: No
  Sender: FDA-Public Use
  Company Number: 2004AP03489

PATIENT
  Age: 47 Year
  Sex: Male

DRUGS (9)
  1. SEROQUEL [Suspect]
  2. PROHANCE [Suspect]
  3. HIRNAMIN [Suspect]
  4. PL GRAN. [Suspect]
  5. AKINETON [Suspect]
  6. SELENASE [Suspect]
  7. ALEVIATIN [Suspect]
  8. GASTER [Suspect]
  9. TEGRETOL [Suspect]

REACTIONS (6)
  - ALANINE AMINOTRANSFERASE INCREASED [None]
  - ASPARTATE AMINOTRANSFERASE INCREASED [None]
  - BLOOD ALKALINE PHOSPHATASE INCREASED [None]
  - BLOOD LACTATE DEHYDROGENASE INCREASED [None]
  - GAMMA-GLUTAMYLTRANSFERASE INCREASED [None]
  - LIVER DISORDER [None]
